FAERS Safety Report 6046337-4 (Version None)
Quarter: 2009Q1

REPORT INFORMATION
  Report Type: 
  Country: None (occurrence: None)
  Receive Date: 20090122
  Receipt Date: 20090112
  Transmission Date: 20090719
  Serious: Yes (Other)
  Sender: FDA-Public Use
  Company Number: IT-AMGEN-US323657

PATIENT
  Sex: Male

DRUGS (5)
  1. ENBREL [Suspect]
     Indication: PSORIATIC ARTHROPATHY
     Dosage: 50 MG WEEKLY
     Route: 058
     Dates: start: 20080508, end: 20081009
  2. NAPROSYN [Concomitant]
     Dosage: 1 G
     Dates: start: 20080801
  3. FOLINA [Concomitant]
     Dosage: NOT PROVIDED
     Dates: start: 19930101
  4. METHOTREXATE [Concomitant]
     Dosage: 15 MG
     Dates: start: 19930101
  5. ISONIAZID [Concomitant]
     Dates: start: 20080508

REACTIONS (2)
  - MYALGIA [None]
  - PARAESTHESIA [None]
